FAERS Safety Report 9201811 (Version 1)
Quarter: 2013Q1

REPORT INFORMATION
  Report Type: Spontaneous
  Country: GB (occurrence: None)
  Receive Date: 20130327
  Receipt Date: 20130327
  Transmission Date: 20140127
  Serious: Yes (Other)
  Sender: FDA-Public Use
  Company Number: IND1-GB-2013-0022

PATIENT
  Age: 34 Year
  Sex: Female
  Weight: 93 kg

DRUGS (3)
  1. INDOMETACIN [Suspect]
     Indication: PRODUCT USED FOR UNKNOWN INDICATION
     Route: 048
     Dates: start: 20120207, end: 20120508
  2. OMEPRAZOLE (OMEPRAZOLE) [Concomitant]
  3. PROPRANOLOL (PROPRANOLOL) [Concomitant]

REACTIONS (2)
  - Menorrhagia [None]
  - Menstrual disorder [None]
